FAERS Safety Report 4302208-2 (Version None)
Quarter: 2004Q1

REPORT INFORMATION
  Report Type: 
  Country: None (occurrence: None)
  Receive Date: 20040220
  Receipt Date: 20040210
  Transmission Date: 20041129
  Serious: Yes (Death, Hospitalization, Other)
  Sender: FDA-Public Use
  Company Number: 2003120379

PATIENT
  Age: 82 Year
  Sex: Female
  Weight: 41 kg

DRUGS (9)
  1. DIFLUCAN [Suspect]
     Indication: OESOPHAGEAL CANDIDIASIS
     Dosage: SEE IMAGE
     Route: 048
     Dates: start: 20031031, end: 20031111
  2. DIFLUCAN [Suspect]
     Indication: OESOPHAGEAL CANDIDIASIS
     Dosage: SEE IMAGE
     Route: 048
     Dates: start: 20031112, end: 20031114
  3. LANSOPRAZOLE [Concomitant]
  4. DOMPERIDONE (DOMPERIDONE) [Concomitant]
  5. CAMOSTAT MESILATE (CAMOSTAT MESILATE) [Concomitant]
  6. PAROXETINE HCL [Concomitant]
  7. DIFLOFENAC SODIUM (DICLOFENAC SODIUM) [Concomitant]
  8. SODIUM BICARBONATE IN PLASTIC CONTAINER [Concomitant]
  9. GABEXATE MESILATE (GABEXATE MESILATE) [Concomitant]

REACTIONS (10)
  - ALANINE AMINOTRANSFERASE INCREASED [None]
  - ASPARTATE AMINOTRANSFERASE INCREASED [None]
  - BLOOD CHLORIDE DECREASED [None]
  - BLOOD LACTATE DEHYDROGENASE INCREASED [None]
  - BLOOD POTASSIUM INCREASED [None]
  - BLOOD PRESSURE DECREASED [None]
  - DISSEMINATED INTRAVASCULAR COAGULATION [None]
  - METABOLIC ACIDOSIS [None]
  - PLATELET COUNT DECREASED [None]
  - RENAL IMPAIRMENT [None]
